FAERS Safety Report 6347608-4 (Version None)
Quarter: 2009Q3

REPORT INFORMATION
  Report Type: 
  Country: None (occurrence: None)
  Receive Date: 20090902
  Receipt Date: 20090902
  Transmission Date: 20100115
  Serious: Yes (Death, Hospitalization)
  Sender: FDA-Public Use
  Company Number: None

PATIENT
  Age: 52 Year
  Sex: Female

DRUGS (3)
  1. CAPECITABINE [Suspect]
     Indication: PANCREATIC CARCINOMA
     Dosage: 2000 MG/M**2 CYC PO
     Route: 048
     Dates: start: 20080523, end: 20080606
  2. REGULAR INSULIN [Concomitant]
  3. LONG ACTING INSULIN [Concomitant]

REACTIONS (16)
  - BLOOD CALCIUM DECREASED [None]
  - BLOOD SODIUM DECREASED [None]
  - CARDIO-RESPIRATORY ARREST [None]
  - DIARRHOEA [None]
  - DISEASE PROGRESSION [None]
  - DYSURIA [None]
  - HAEMOGLOBIN DECREASED [None]
  - HEPATORENAL FAILURE [None]
  - HYPOPHAGIA [None]
  - METABOLIC ACIDOSIS [None]
  - NAUSEA [None]
  - PANCREATIC CARCINOMA [None]
  - PLATELET COUNT DECREASED [None]
  - RENAL FAILURE ACUTE [None]
  - RESPIRATORY ALKALOSIS [None]
  - WHITE BLOOD CELL COUNT INCREASED [None]
